FAERS Safety Report 11773995 (Version 1)
Quarter: 2015Q4

REPORT INFORMATION
  Report Type: Spontaneous
  Country: US (occurrence: US)
  Receive Date: 20151124
  Receipt Date: 20151124
  Transmission Date: 20160304
  Serious: Yes (Hospitalization)
  Sender: FDA-Public Use
  Company Number: US-INVAGEN PHARMACEUTICALS, INC.-1044577

PATIENT
  Age: 65 Year
  Sex: Female
  Weight: 78.36 kg

DRUGS (24)
  1. COLACE [Suspect]
     Active Substance: DOCUSATE SODIUM
  2. METOPROLOL SUCCINATE EXTENDED-RELEASE [Concomitant]
     Active Substance: METOPROLOL SUCCINATE
     Route: 048
  3. POTASSIUM CITRATE. [Concomitant]
     Active Substance: POTASSIUM CITRATE
  4. ZINC [Concomitant]
     Active Substance: ZINC\ZINC CHLORIDE
  5. GABAPENTIN. [Suspect]
     Active Substance: GABAPENTIN
     Indication: SURGERY
     Route: 048
  6. L-LYSINE [Suspect]
     Active Substance: LYSINE
  7. CLONAZEPAM. [Concomitant]
     Active Substance: CLONAZEPAM
     Route: 048
  8. SLOW MAG [Concomitant]
     Active Substance: MAGNESIUM CHLORIDE
  9. TUMS [Concomitant]
     Active Substance: CALCIUM CARBONATE
     Route: 048
  10. VITAMIN D3DIETARY SUPPLEMEN DIETARY SUPPLEMENT [Concomitant]
     Active Substance: ALPHA-TOCOPHEROL\CHOLECALCIFEROL
  11. GINKGO BILOBA [Concomitant]
     Active Substance: GINKGO
  12. LYRICA [Suspect]
     Active Substance: PREGABALIN
     Dates: end: 20150721
  13. DULOXETINE. [Concomitant]
     Active Substance: DULOXETINE
     Route: 048
  14. NAPROXEN. [Concomitant]
     Active Substance: NAPROXEN
  15. SENNOSIDES AND DOCUSATE SODIUM [Concomitant]
     Active Substance: DOCUSATE SODIUM\SENNOSIDES
  16. FIBER [Concomitant]
     Active Substance: PSYLLIUM HUSK
     Route: 048
  17. MI-OMEGA NF [Concomitant]
     Active Substance: .BETA.-SITOSTEROL\CYANOCOBALAMIN\FOLIC ACID\OMEGA-3-ACID ETHYL ESTERS\PYRIDOXINE HYDROCHLORIDE
  18. ONDANSETRON [Suspect]
     Active Substance: ONDANSETRON
     Dates: start: 20150929, end: 20151002
  19. RESTASIS [Concomitant]
     Active Substance: CYCLOSPORINE
  20. LUTEIN [Concomitant]
     Active Substance: LUTEIN
     Route: 048
  21. MULTI VITAMIN AND MINERAL VITAMIN [Concomitant]
     Active Substance: .ALPHA.-TOCOPHEROL ACETATE, D-\ASCORBIC ACID\CALCIUM PANTOTHENATE\FOLIC ACID\MANGANESE\NIACINAMIDE\PYRIDOXINE\RIBOFLAVIN\THIAMINE\VITAMIN A\ZINC OXIDE
     Route: 048
  22. LINZESS [Suspect]
     Active Substance: LINACLOTIDE
  23. CHLORZOXAZONE. [Concomitant]
     Active Substance: CHLORZOXAZONE
  24. NEXIUM [Concomitant]
     Active Substance: ESOMEPRAZOLE MAGNESIUM
     Route: 048

REACTIONS (9)
  - Drug ineffective [Unknown]
  - Weight increased [Recovering/Resolving]
  - Eye movement disorder [Recovered/Resolved]
  - Blood potassium decreased [Unknown]
  - Serotonin syndrome [Recovered/Resolved]
  - Speech disorder [Recovered/Resolved]
  - Limb discomfort [Recovered/Resolved]
  - Off label use [Unknown]
  - Laryngitis [Unknown]

NARRATIVE: CASE EVENT DATE: 20151002
